FAERS Safety Report 25376700 (Version 1)
Quarter: 2025Q2

REPORT INFORMATION
  Report Type: Spontaneous
  Country: FR (occurrence: FR)
  Receive Date: 20250530
  Receipt Date: 20250530
  Transmission Date: 20250716
  Serious: Yes (Other)
  Sender: CELLTRION
  Company Number: FR-AMGEN-FRASP2024236004

PATIENT

DRUGS (7)
  1. ADALIMUMAB [Suspect]
     Active Substance: ADALIMUMAB
     Indication: Neurosarcoidosis
     Dosage: 40 MILLIGRAM, Q2WK (ADDITIONAL INFORMATION ON DRUG (FREE TEXT): DOSAGE1: UNIT=NOT AVAILABLE))
     Route: 065
  2. METHOTREXATE [Concomitant]
     Active Substance: METHOTREXATE
     Indication: Neurosarcoidosis
  3. METHOTREXATE [Concomitant]
     Active Substance: METHOTREXATE
  4. METHOTREXATE [Concomitant]
     Active Substance: METHOTREXATE
  5. METHOTREXATE [Concomitant]
     Active Substance: METHOTREXATE
  6. CORTICOSTEROID NOS [Concomitant]
     Active Substance: CORTICOSTEROID NOS
     Indication: Neurosarcoidosis
  7. CORTICOSTEROID NOS [Concomitant]
     Active Substance: CORTICOSTEROID NOS

REACTIONS (3)
  - Neurosarcoidosis [Unknown]
  - Drug ineffective for unapproved indication [Unknown]
  - Off label use [Unknown]
